FAERS Safety Report 7723683-7 (Version None)
Quarter: 2011Q3

REPORT INFORMATION
  Report Type: 
  Country: None (occurrence: None)
  Receive Date: 20110901
  Receipt Date: 20110819
  Transmission Date: 20111222
  Serious: Yes (Other)
  Sender: FDA-Public Use
  Company Number: US-ELI_LILLY_AND_COMPANY-US201108005250

PATIENT
  Sex: Female

DRUGS (5)
  1. LEVOXYL [Concomitant]
  2. HYDROCODONE BITARTRATE [Concomitant]
  3. VITAMIN D [Concomitant]
  4. CYMBALTA [Suspect]
     Indication: FIBROMYALGIA
     Dosage: 30 MG, UNK
     Dates: start: 20110630, end: 20110703
  5. ACTONEL [Concomitant]

REACTIONS (11)
  - PANIC ATTACK [None]
  - FEAR [None]
  - PARAESTHESIA [None]
  - DIZZINESS [None]
  - TREMOR [None]
  - VISION BLURRED [None]
  - VISUAL ACUITY REDUCED [None]
  - CHEST PAIN [None]
  - DIARRHOEA [None]
  - SPEECH DISORDER [None]
  - DRY MOUTH [None]
